FAERS Safety Report 6348950-3 (Version None)
Quarter: 2009Q3

REPORT INFORMATION
  Report Type: 
  Country: None (occurrence: None)
  Receive Date: 20090911
  Receipt Date: 20090831
  Transmission Date: 20100115
  Serious: Yes (Hospitalization)
  Sender: FDA-Public Use
  Company Number: IN-PFIZER INC-2009243508

PATIENT
  Age: 38 Year

DRUGS (1)
  1. DAXID [Suspect]
     Indication: ANXIETY DISORDER
     Route: 048

REACTIONS (1)
  - ELECTROLYTE IMBALANCE [None]
